FAERS Safety Report 14061024 (Version 4)
Quarter: 2018Q1

REPORT INFORMATION
  Report Type: Report from Study
  Country: US (occurrence: US)
  Receive Date: 20171007
  Receipt Date: 20180302
  Transmission Date: 20180508
  Serious: Yes (Hospitalization, Other)
  Sender: FDA-Public Use
  Company Number: US-AMGEN-USASP2017148133

PATIENT
  Age: 66 Year
  Sex: Female
  Weight: 80.3 kg

DRUGS (36)
  1. ZITHROMAX [Suspect]
     Active Substance: AZITHROMYCIN DIHYDRATE
     Indication: PRODUCT USED FOR UNKNOWN INDICATION
     Dosage: UNK
     Route: 065
  2. HCQ [Concomitant]
     Active Substance: HYDROXYCHLOROQUINE SULFATE
     Dosage: 100 MG, UNK
  3. XANAX [Concomitant]
     Active Substance: ALPRAZOLAM
     Dosage: 2 MG, UNK (4 TIMES DAILY)
     Route: 048
  4. FLONASE [Concomitant]
     Active Substance: FLUTICASONE PROPIONATE
     Dosage: 50 MUG, QD
     Route: 045
  5. NEXIUM [Concomitant]
     Active Substance: ESOMEPRAZOLE MAGNESIUM
     Dosage: 40 MG, QD
     Route: 048
  6. CHOLECALCIFEROL [Concomitant]
     Active Substance: CHOLECALCIFEROL
     Dosage: 1000 UNIT, QD
     Route: 048
  7. ALLEGRA D 24 HOUR [Concomitant]
     Dosage: UNK UNK, QD (180-240 MG)
     Route: 048
  8. CALTRATE [Concomitant]
     Active Substance: CALCIUM CARBONATE
     Dosage: UNK (PER THREE DAY)
  9. WELCHOL [Suspect]
     Active Substance: COLESEVELAM HYDROCHLORIDE
     Indication: PRODUCT USED FOR UNKNOWN INDICATION
     Dosage: UNK
     Route: 065
  10. SYMBICORT [Concomitant]
     Active Substance: BUDESONIDE\FORMOTEROL FUMARATE DIHYDRATE
     Dosage: UNK UNK, BID (160-4.5 MCG/ACT INHALER)
     Route: 045
  11. SINGULAIR [Concomitant]
     Active Substance: MONTELUKAST SODIUM
     Dosage: 10 MG, UNK (NIGHTLY)
     Route: 048
  12. ENBREL [Suspect]
     Active Substance: ETANERCEPT
     Indication: RHEUMATOID ARTHRITIS
     Dosage: 50 MG, QWK
     Route: 065
     Dates: start: 1990, end: 2003
  13. ORENCIA [Concomitant]
     Active Substance: ABATACEPT
     Dosage: 125 MG/ML, QWK
     Route: 058
  14. ALBUTEROL SULFATE AND IPRATROPIUM BROMIDE [Concomitant]
     Active Substance: ALBUTEROL SULFATE\IPRATROPIUM BROMIDE
     Dosage: UNK (0.5-2.5 MG/ML)
     Route: 045
  15. NORVASC [Concomitant]
     Active Substance: AMLODIPINE BESYLATE
     Dosage: 2.5 MG, QD
     Route: 048
  16. LASIX [Concomitant]
     Active Substance: FUROSEMIDE
     Dosage: 20 MG, QD
     Route: 048
  17. NORCO [Concomitant]
     Active Substance: ACETAMINOPHEN\HYDROCODONE BITARTRATE
     Dosage: UNK UNK, Q4H (10-325 MG) AS NEEDED
     Route: 048
  18. FOSAMAX [Suspect]
     Active Substance: ALENDRONATE SODIUM
     Indication: PRODUCT USED FOR UNKNOWN INDICATION
     Dosage: UNK
     Route: 065
  19. AZULFIDINE [Suspect]
     Active Substance: SULFASALAZINE
     Indication: PRODUCT USED FOR UNKNOWN INDICATION
     Dosage: 500 MG, QD
     Route: 048
  20. AZULFIDINE [Suspect]
     Active Substance: SULFASALAZINE
     Dosage: 500 MG, BID
     Route: 048
  21. HCQ [Concomitant]
     Active Substance: HYDROXYCHLOROQUINE SULFATE
     Dosage: 200 MG, UNK
  22. COLACE [Concomitant]
     Active Substance: DOCUSATE SODIUM
     Dosage: 100 MG, BID
     Route: 048
  23. AMBIEN [Concomitant]
     Active Substance: ZOLPIDEM TARTRATE
     Dosage: 10 MG, UNK (NIGHTLY AS NEEDED)
     Route: 048
  24. ENBREL [Suspect]
     Active Substance: ETANERCEPT
     Dosage: 50 MG, QWK
     Route: 065
     Dates: start: 201710
  25. ENBREL [Suspect]
     Active Substance: ETANERCEPT
     Dosage: 50 MG, QWK
     Route: 065
  26. BACLOFEN. [Suspect]
     Active Substance: BACLOFEN
     Indication: PRODUCT USED FOR UNKNOWN INDICATION
     Dosage: UNK
     Route: 065
  27. CELEBREX [Concomitant]
     Active Substance: CELECOXIB
     Indication: RHEUMATOID ARTHRITIS
     Dosage: 200 MG, BID
     Route: 048
  28. WELLBUTRIN [Concomitant]
     Active Substance: BUPROPION HYDROCHLORIDE
     Dosage: 150 MG, BID
     Route: 048
  29. CALTRATE [Concomitant]
     Active Substance: CALCIUM CARBONATE
     Dosage: UNK UNK, QD
  30. ENBREL [Suspect]
     Active Substance: ETANERCEPT
     Indication: OSTEOARTHRITIS
     Dosage: 50 MG, QWK
     Route: 065
     Dates: start: 20170824
  31. AMOXICILLIN. [Suspect]
     Active Substance: AMOXICILLIN
     Indication: PRODUCT USED FOR UNKNOWN INDICATION
     Dosage: UNK
     Route: 065
  32. PERCOCET [Suspect]
     Active Substance: ACETAMINOPHEN\OXYCODONE HYDROCHLORIDE
     Indication: PRODUCT USED FOR UNKNOWN INDICATION
     Dosage: UNK
     Route: 065
  33. ALBUTEROL. [Suspect]
     Active Substance: ALBUTEROL
     Indication: PRODUCT USED FOR UNKNOWN INDICATION
     Dosage: UNK
     Route: 065
  34. MYCOSTATIN [Concomitant]
     Active Substance: NYSTATIN
     Dosage: UNK UNK, Q4H (100000 ML/UNIT TAKE 5 ML)
     Route: 048
  35. VITAMIN D [Concomitant]
     Active Substance: CHOLECALCIFEROL
     Dosage: UNK
     Dates: start: 20170419
  36. RECLAST [Concomitant]
     Active Substance: ZOLEDRONIC ACID
     Indication: OSTEOPOROSIS
     Dosage: UNK
     Route: 065
     Dates: start: 20170428

REACTIONS (47)
  - Knee arthroplasty [Unknown]
  - Skin papilloma [Unknown]
  - Oral contusion [Recovered/Resolved]
  - Wrong technique in product usage process [Unknown]
  - Decreased appetite [Unknown]
  - Abdominal distension [Unknown]
  - Mobility decreased [Unknown]
  - Mineral supplementation [Not Recovered/Not Resolved]
  - Off label use [Unknown]
  - Peroneal nerve injury [Unknown]
  - Sciatica [Not Recovered/Not Resolved]
  - Neuropathy peripheral [Unknown]
  - Bradyphrenia [Not Recovered/Not Resolved]
  - Soft tissue sarcoma [Unknown]
  - Chronic kidney disease [Not Recovered/Not Resolved]
  - Spinal fracture [Unknown]
  - Chronic obstructive pulmonary disease [Unknown]
  - Wheezing [Unknown]
  - Spinal osteoarthritis [Unknown]
  - Product storage error [Unknown]
  - Influenza [Unknown]
  - Nerve injury [Unknown]
  - Rheumatoid arthritis [Unknown]
  - Fall [Unknown]
  - Hypoaesthesia [Not Recovered/Not Resolved]
  - Asthenia [Unknown]
  - Arthralgia [Unknown]
  - Renal cancer [Recovered/Resolved]
  - Pneumonia [Unknown]
  - Osteochondrosis [Unknown]
  - Hip arthroplasty [Unknown]
  - Nephrolithiasis [Unknown]
  - Contusion [Unknown]
  - Full blood count decreased [Unknown]
  - Fatigue [Unknown]
  - Lumbar spinal stenosis [Unknown]
  - Swelling [Unknown]
  - Nausea [Unknown]
  - Liposarcoma [Unknown]
  - Muscle spasms [Unknown]
  - Paraesthesia [Not Recovered/Not Resolved]
  - Hepatic cancer [Recovered/Resolved]
  - Dizziness [Recovered/Resolved]
  - Vertebroplasty [Unknown]
  - Thoracic vertebral fracture [Unknown]
  - Pruritus [Unknown]
  - Adverse reaction [Unknown]

NARRATIVE: CASE EVENT DATE: 2008
